FAERS Safety Report 15254333 (Version 1)
Quarter: 2018Q3

REPORT INFORMATION
  Report Type: Spontaneous
  Country: US (occurrence: US)
  Receive Date: 20180808
  Receipt Date: 20180808
  Transmission Date: 20181010
  Serious: No
  Sender: FDA-Public Use
  Company Number: US-BAYER-2018-148968

PATIENT
  Age: 77 Year
  Sex: Female
  Weight: 54 kg

DRUGS (1)
  1. MIRALAX [Suspect]
     Active Substance: POLYETHYLENE GLYCOL 3350
     Dosage: UNK UNK, QID /4 CAPFUL 4 TIMES A DAY DOSE
     Route: 048

REACTIONS (3)
  - Product use issue [Unknown]
  - Product prescribing issue [Unknown]
  - Incorrect drug administration duration [Unknown]
